FAERS Safety Report 22232112 (Version 1)
Quarter: 2023Q2

REPORT INFORMATION
  Report Type: Spontaneous
  Country: US (occurrence: US)
  Receive Date: 20230420
  Receipt Date: 20230420
  Transmission Date: 20230722
  Serious: No
  Sender: FDA-Public Use
  Company Number: US-PTx-2023000001

PATIENT
  Sex: Male

DRUGS (6)
  1. LEUKINE [Suspect]
     Active Substance: SARGRAMOSTIM
     Indication: Prostate cancer
     Dosage: 250 MCG, ADD 1 ML BACTERIOSTATIC WATER/VIAL + INJECT 500 MCG(2VIALS) SC INJ. DAILY FOR 15 DAYS/MONTH
     Route: 058
     Dates: start: 20210319
  2. PREDNISONE [Concomitant]
     Active Substance: PREDNISONE
     Indication: Product used for unknown indication
     Dosage: 5 MG TABLET
  3. Sterile water Bact [Concomitant]
     Indication: Product used for unknown indication
     Dosage: (30 ML= 1VL)
  4. ZYTIGA [Concomitant]
     Active Substance: ABIRATERONE ACETATE
     Indication: Product used for unknown indication
     Dosage: 250 MG TABLET
  5. DEMEROL [Concomitant]
     Active Substance: MEPERIDINE HYDROCHLORIDE
     Indication: Product used for unknown indication
     Dosage: 100 MG TABLET
  6. METHADONE [Concomitant]
     Active Substance: METHADONE HYDROCHLORIDE
     Indication: Product used for unknown indication
     Dosage: 10 MG/ML

REACTIONS (1)
  - Diarrhoea [Unknown]
